FAERS Safety Report 14028684 (Version 1)
Quarter: 2017Q3

REPORT INFORMATION
  Report Type: Spontaneous
  Country: US (occurrence: US)
  Receive Date: 20170930
  Receipt Date: 20170930
  Transmission Date: 20171128
  Serious: No
  Sender: FDA-Public Use
  Company Number: US-SA-2017SA066288

PATIENT
  Age: 49 Year
  Sex: Female

DRUGS (10)
  1. AUBAGIO [Suspect]
     Active Substance: TERIFLUNOMIDE
     Indication: MULTIPLE SCLEROSIS
     Route: 048
     Dates: start: 20170201
  2. BIOTIN [Concomitant]
     Active Substance: BIOTIN
  3. PANTHENOL/RETINOL/THIAMINE HYDROCHLORIDE/ASCORBIC ACID/ERGOCALCIFEROL/FOLIC ACID/RIBOFLAVIN/NICOTINA [Concomitant]
  4. PROAIR HFA [Concomitant]
     Active Substance: ALBUTEROL SULFATE
  5. CLINDAMYCIN. [Suspect]
     Active Substance: CLINDAMYCIN
     Route: 065
  6. SYMBICORT [Concomitant]
     Active Substance: BUDESONIDE\FORMOTEROL FUMARATE DIHYDRATE
  7. VITAMIN D3 [Concomitant]
     Active Substance: CHOLECALCIFEROL
  8. XANAX [Concomitant]
     Active Substance: ALPRAZOLAM
  9. PERCOCET [Concomitant]
     Active Substance: ACETAMINOPHEN\OXYCODONE HYDROCHLORIDE
  10. ERYTHROMYCIN. [Suspect]
     Active Substance: ERYTHROMYCIN
     Route: 065

REACTIONS (1)
  - Hypersensitivity [Unknown]

NARRATIVE: CASE EVENT DATE: 201703
